FAERS Safety Report 9161506 (Version 1)
Quarter: 2013Q1

REPORT INFORMATION
  Report Type: Spontaneous
  Country: US (occurrence: US)
  Receive Date: 20130313
  Receipt Date: 20130313
  Transmission Date: 20140127
  Serious: No
  Sender: FDA-Public Use
  Company Number: US-PFIZER INC-2013083535

PATIENT
  Age: 59 Year
  Sex: Female
  Weight: 61.22 kg

DRUGS (2)
  1. LYRICA [Suspect]
     Indication: MUSCLE SPASMS
     Dosage: 50 MG, 1X/DAY
     Dates: start: 20130306
  2. BENADRYL [Suspect]
     Indication: HYPERSENSITIVITY
     Dosage: UNK, 1-2 TIMES IN A WEEK
     Dates: start: 20130307

REACTIONS (4)
  - Intentional drug misuse [Unknown]
  - Chest discomfort [Recovered/Resolved]
  - Agitation [Recovered/Resolved]
  - Fatigue [Unknown]
